FAERS Safety Report 23580948 (Version 4)
Quarter: 2024Q2

REPORT INFORMATION
  Report Type: Report from Study
  Country: FR (occurrence: FR)
  Receive Date: 20240229
  Receipt Date: 20240611
  Transmission Date: 20240716
  Serious: Yes (Hospitalization, Other)
  Sender: FDA-Public Use
  Company Number: FR-TAKEDA-2024TUS018692

PATIENT
  Age: 62 Year
  Sex: Male
  Weight: 63 kg

DRUGS (7)
  1. MARIBAVIR [Suspect]
     Active Substance: MARIBAVIR
     Indication: Cytomegalovirus infection
     Dosage: 400 MILLIGRAM, BID
     Route: 048
     Dates: start: 20230630, end: 20240201
  2. MARIBAVIR [Suspect]
     Active Substance: MARIBAVIR
     Dosage: UNK
     Route: 048
     Dates: start: 20230331, end: 20240201
  3. MARIBAVIR [Suspect]
     Active Substance: MARIBAVIR
     Dosage: 400 MILLIGRAM, BID
     Route: 048
     Dates: start: 20240222
  4. MARIBAVIR [Suspect]
     Active Substance: MARIBAVIR
     Dosage: UNK
     Route: 048
     Dates: start: 20240229
  5. TACROLIMUS [Concomitant]
     Active Substance: TACROLIMUS
     Indication: Prophylaxis
     Dosage: 3 MILLIGRAM, QD
     Route: 048
     Dates: start: 20230203
  6. CELLCEPT [Concomitant]
     Active Substance: MYCOPHENOLATE MOFETIL
     Dosage: 1000 MILLIGRAM, BID
     Route: 048
     Dates: start: 20221005
  7. PREDNISONE [Concomitant]
     Active Substance: PREDNISONE
     Dosage: 6 MILLIGRAM, QD
     Route: 048
     Dates: start: 20221005

REACTIONS (4)
  - Cardiac failure [Not Recovered/Not Resolved]
  - Left ventricular dysfunction [Not Recovered/Not Resolved]
  - Cytomegalovirus infection reactivation [Not Recovered/Not Resolved]
  - Off label use [Unknown]

NARRATIVE: CASE EVENT DATE: 20230823
